FAERS Safety Report 5978301-5 (Version None)
Quarter: 2008Q4

REPORT INFORMATION
  Report Type: 
  Country: None (occurrence: None)
  Receive Date: 20081204
  Receipt Date: 20081126
  Transmission Date: 20090506
  Serious: Yes (Other)
  Sender: FDA-Public Use
  Company Number: JP-BAYER-200811240BYL

PATIENT
  Age: 61 Year
  Sex: Male

DRUGS (6)
  1. NEXAVAR [Suspect]
     Indication: RENAL CELL CARCINOMA STAGE IV
     Dosage: UNIT DOSE: 200 MG
     Route: 048
     Dates: start: 20080422, end: 20080611
  2. NEXAVAR [Suspect]
     Dosage: UNIT DOSE: 200 MG
     Route: 048
     Dates: start: 20080729, end: 20080909
  3. URINORM [Concomitant]
     Route: 048
     Dates: end: 20080513
  4. ZYLORIC [Concomitant]
     Route: 048
     Dates: start: 20080514
  5. CARDENALIN [Concomitant]
     Indication: HYPERTENSION
     Route: 048
     Dates: end: 20080429
  6. CARDENALIN [Concomitant]
     Route: 048
     Dates: start: 20080430

REACTIONS (1)
  - HEPATIC FUNCTION ABNORMAL [None]
